FAERS Safety Report 22686052 (Version 8)
Quarter: 2023Q4

REPORT INFORMATION
  Report Type: Report from Study
  Country: JP (occurrence: None)
  Receive Date: 20230710
  Receipt Date: 20231018
  Transmission Date: 20240110
  Serious: Yes (Hospitalization)
  Sender: FDA-Public Use
  Company Number: JP-ROCHE-3383500

PATIENT
  Age: 71 Year
  Sex: Male

DRUGS (30)
  1. ATEZOLIZUMAB [Suspect]
     Active Substance: ATEZOLIZUMAB
     Indication: Hormone-refractory prostate cancer
     Dosage: ON 14/JUL/2023, HE RECEIVED THE MOST RECENT DOSE OF ATEZOLIZUMAB PRIOR TO FEBRILE NEUTROPENIA (EPISO
     Route: 041
     Dates: start: 20230622
  2. ATEZOLIZUMAB [Suspect]
     Active Substance: ATEZOLIZUMAB
     Route: 041
     Dates: start: 20230714
  3. CABOZANTINIB [Suspect]
     Active Substance: CABOZANTINIB
     Indication: Hormone-refractory prostate cancer
     Route: 048
     Dates: start: 20230622, end: 20230627
  4. CABOZANTINIB [Suspect]
     Active Substance: CABOZANTINIB
     Route: 048
     Dates: start: 20230804
  5. ACETAMINOPHEN [Concomitant]
     Active Substance: ACETAMINOPHEN
     Dates: start: 20230618, end: 20230619
  6. CELECOXIB [Concomitant]
     Active Substance: CELECOXIB
     Dates: start: 20220413, end: 20230618
  7. EPERISONE HYDROCHLORIDE [Concomitant]
     Active Substance: EPERISONE HYDROCHLORIDE
     Dates: start: 20220413
  8. FERROUS SULFATE [Concomitant]
     Active Substance: FERROUS SULFATE
     Dates: start: 20230603, end: 20230620
  9. AMLODIPINE BESYLATE\IRBESARTAN [Concomitant]
     Active Substance: AMLODIPINE BESYLATE\IRBESARTAN
     Dates: start: 20211215
  10. LOXOPROFEN SODIUM DIHYDRATE [Concomitant]
     Active Substance: LOXOPROFEN SODIUM DIHYDRATE
     Dates: start: 20230602
  11. PRAVASTATIN SODIUM [Concomitant]
     Active Substance: PRAVASTATIN SODIUM
     Dates: start: 20211217
  12. REBAMIPIDE [Concomitant]
     Active Substance: REBAMIPIDE
     Dates: start: 20220413, end: 20230713
  13. ACETAMINOPHEN\TRAMADOL HYDROCHLORIDE [Concomitant]
     Active Substance: ACETAMINOPHEN\TRAMADOL HYDROCHLORIDE
     Dates: start: 20230602, end: 20230620
  14. URSODIOL [Concomitant]
     Active Substance: URSODIOL
     Dates: start: 20191127, end: 20230713
  15. OXYCODONE HYDROCHLORIDE [Concomitant]
     Active Substance: OXYCODONE HYDROCHLORIDE
     Dates: start: 20230621, end: 20230628
  16. OXYCODONE [Concomitant]
     Active Substance: OXYCODONE
     Dates: start: 20230620, end: 20230623
  17. CALCIUM CHLORIDE\POTASSIUM CHLORIDE\SODIUM ACETATE\SODIUM CHLORIDE [Concomitant]
     Active Substance: CALCIUM CHLORIDE\POTASSIUM CHLORIDE\SODIUM ACETATE\SODIUM CHLORIDE
     Dates: start: 20230618, end: 20230618
  18. PEGFILGRASTIM [Concomitant]
     Active Substance: PEGFILGRASTIM
     Indication: White blood cell count decreased
     Route: 058
     Dates: start: 20230718, end: 20230718
  19. AZUNOL [Concomitant]
     Dates: start: 20230701, end: 20230708
  20. CALONAL [Concomitant]
     Active Substance: ACETAMINOPHEN
     Dates: start: 20230622, end: 20230703
  21. DAYVIGO [Concomitant]
     Active Substance: LEMBOREXANT
     Dates: start: 20230704
  22. FENTANYL [Concomitant]
     Active Substance: FENTANYL
     Dates: start: 20230623, end: 20230703
  23. GLYCERIN [Concomitant]
     Active Substance: GLYCERIN
     Dates: start: 20230621, end: 20230621
  24. LEUPLIN [Concomitant]
     Active Substance: LEUPROLIDE ACETATE
     Dates: start: 20230623
  25. PRAVASTATIN SODIUM [Concomitant]
     Active Substance: PRAVASTATIN SODIUM
     Dates: start: 20230707, end: 20230713
  26. PRIMPERAN [Concomitant]
     Active Substance: METOCLOPRAMIDE HYDROCHLORIDE
     Dates: start: 20230714
  27. SODIUM PICOSULFATE [Concomitant]
     Active Substance: SODIUM PICOSULFATE
     Dates: start: 20230620
  28. SYMPROIC [Concomitant]
     Active Substance: NALDEMEDINE
     Dates: start: 20230620
  29. DICLOFENAC SODIUM [Concomitant]
     Active Substance: DICLOFENAC\DICLOFENAC SODIUM
     Dates: start: 20230703
  30. GOSERELIN [Concomitant]
     Active Substance: GOSERELIN
     Dates: start: 20200708, end: 20230622

REACTIONS (3)
  - Febrile neutropenia [Recovered/Resolved]
  - Pyrexia [Recovered/Resolved]
  - Vomiting [Recovered/Resolved]

NARRATIVE: CASE EVENT DATE: 20230628
